FAERS Safety Report 17259724 (Version 1)
Quarter: 2020Q1

REPORT INFORMATION
  Report Type: Spontaneous
  Country: NL (occurrence: NL)
  Receive Date: 20200110
  Receipt Date: 20200110
  Transmission Date: 20200409
  Serious: Yes (Life-Threatening, Other)
  Sender: FDA-Public Use
  Company Number: NL-AUROBINDO-AUR-APL-2020-001738

PATIENT
  Sex: Male
  Weight: 3.1 kg

DRUGS (1)
  1. CITALOPRAM 20 MG FILM COATED TABLETS [Suspect]
     Active Substance: CITALOPRAM HYDROBROMIDE
     Indication: DEPRESSION
     Dosage: 20 MILLIGRAM, ONCE A DAY
     Route: 064
     Dates: start: 2019

REACTIONS (2)
  - Maternal exposure during pregnancy [Unknown]
  - Newborn persistent pulmonary hypertension [Recovering/Resolving]

NARRATIVE: CASE EVENT DATE: 20191206
